FAERS Safety Report 18244125 (Version 2)
Quarter: 2020Q3

REPORT INFORMATION
  Report Type: Spontaneous
  Country: US (occurrence: US)
  Receive Date: 20200908
  Receipt Date: 20200925
  Transmission Date: 20201103
  Serious: No
  Sender: FDA-Public Use
  Company Number: US-AMGEN INC.-USASP2020144528

PATIENT
  Age: 28 Year
  Sex: Female
  Weight: 63.76 kg

DRUGS (11)
  1. NARATRIPTAN [Concomitant]
     Active Substance: NARATRIPTAN HYDROCHLORIDE
     Dosage: 2.5 MILLIGRAM (BY ORAL ROUTE ONCE MAY REPEAT AFTER 4 HOURS)
     Route: 048
  2. ZYRTEC [Concomitant]
     Active Substance: CETIRIZINE HYDROCHLORIDE
     Dosage: 10 MILLIGRAM, QD
     Route: 048
  3. BOTOX [Concomitant]
     Active Substance: ONABOTULINUMTOXINA
     Indication: MIGRAINE
     Dosage: UNK
  4. PROCHLORPERAZINE MALEATE. [Concomitant]
     Active Substance: PROCHLORPERAZINE MALEATE
     Dosage: UNK UNK, QD (ONE TABLET BY ORAL ROUTE THREE TIME EVERY DAY)
     Route: 048
  5. ZOFRAN [Concomitant]
     Active Substance: ONDANSETRON HYDROCHLORIDE
     Dosage: 4 MILLIGRAM, BID
     Route: 048
  6. KETOROLAC [Concomitant]
     Active Substance: KETOROLAC TROMETHAMINE
     Dosage: 10 MILLIGRAM, BID (FOR FIVE DAYS)
     Dates: start: 20190121
  7. TORADOL [Concomitant]
     Active Substance: KETOROLAC TROMETHAMINE
     Indication: BREAKTHROUGH PAIN
     Dosage: UNK UNK, AS NECESSARY
  8. AIMOVIG [Suspect]
     Active Substance: ERENUMAB-AOOE
     Indication: MIGRAINE PROPHYLAXIS
     Dosage: 70 MILLIGRAM, QMO
     Route: 058
     Dates: start: 201912
  9. AMITRIPTYLINE [Concomitant]
     Active Substance: AMITRIPTYLINE
     Dosage: 50 MILLIGRAM, QD (BEDTIME), SINCE 12/APR/2019 25 MILLIGRAM, QD (BEDTIME)
     Route: 048
     Dates: start: 20180720
  10. RELPAX [Concomitant]
     Active Substance: ELETRIPTAN HYDROBROMIDE
     Dosage: 40 MILLIGRAM (MAY REPEAT DOSE AFTER 2 HOURS/ NO MORE THAN 2 DOSES WITHIN 24 HOUR)
     Route: 048
     Dates: start: 20190412
  11. RIZATRIPTAN. [Concomitant]
     Active Substance: RIZATRIPTAN
     Dosage: 10 MILLIGRAM, (1 TAB ONCE, MAY REPEAT AT 2 HOUR INTERVALS; NOT EXCEED 30 MG IN 24 HOURS)
     Route: 048

REACTIONS (3)
  - Therapeutic product effect incomplete [Unknown]
  - Injection site rash [Unknown]
  - Accidental exposure to product [Unknown]

NARRATIVE: CASE EVENT DATE: 20200818
